FAERS Safety Report 4333404-6 (Version None)
Quarter: 2004Q1

REPORT INFORMATION
  Report Type: 
  Country: None (occurrence: None)
  Receive Date: 20040330
  Receipt Date: 20040319
  Transmission Date: 20041129
  Serious: Yes (Other)
  Sender: FDA-Public Use
  Company Number: 163-20785-04030517

PATIENT
  Age: 17 Year
  Sex: Male

DRUGS (2)
  1. THALOMID [Suspect]
     Indication: RHEUMATOID ARTHRITIS
     Dosage: 150 MG, QD, ORAL
     Route: 048
     Dates: start: 20030506
  2. ETANERCEPT (ETANERCEPT) [Suspect]

REACTIONS (1)
  - PAPILLOEDEMA [None]
